FAERS Safety Report 16354088 (Version 1)
Quarter: 2019Q2

REPORT INFORMATION
  Report Type: Report from Study
  Country: FR (occurrence: FR)
  Receive Date: 20190524
  Receipt Date: 20190524
  Transmission Date: 20190711
  Serious: Yes (Hospitalization)
  Sender: FDA-Public Use
  Company Number: PHHY2019FR104119

PATIENT
  Age: 52 Year
  Sex: Male
  Weight: 72 kg

DRUGS (7)
  1. PREDNISOLONA [Concomitant]
     Active Substance: PREDNISOLONE
     Indication: CHEMOTHERAPY
     Dosage: 40 MG, QD
     Route: 065
     Dates: start: 20190424, end: 20190424
  2. CYTARABINE. [Suspect]
     Active Substance: CYTARABINE
     Indication: CHEMOTHERAPY
     Dosage: 5600 MG, QD
     Route: 042
     Dates: start: 20190416, end: 20190417
  3. METHOTREXATE. [Suspect]
     Active Substance: METHOTREXATE
     Dosage: 15 MG, QD
     Route: 065
     Dates: start: 20190424, end: 20190424
  4. AMN107 [Suspect]
     Active Substance: NILOTINIB
     Indication: ACUTE LYMPHOCYTIC LEUKAEMIA
     Dosage: 800 MG, QD
     Route: 048
     Dates: start: 20190415
  5. ZOPHREN [Concomitant]
     Active Substance: ONDANSETRON
     Indication: PROPHYLAXIS
     Dosage: 24 MG, Q24H
     Route: 042
     Dates: start: 20190415
  6. METHOTREXATE. [Suspect]
     Active Substance: METHOTREXATE
     Indication: CHEMOTHERAPY
     Dosage: 1870 MG, UNK
     Route: 042
     Dates: start: 20190415, end: 20190415
  7. CYTARABINE. [Suspect]
     Active Substance: CYTARABINE
     Dosage: 40 MG, QD
     Route: 065
     Dates: start: 20190424, end: 20190424

REACTIONS (3)
  - Device related thrombosis [Not Recovered/Not Resolved]
  - Folliculitis [Not Recovered/Not Resolved]
  - Pyrexia [Not Recovered/Not Resolved]

NARRATIVE: CASE EVENT DATE: 20190420
